FAERS Safety Report 8610555-9 (Version None)
Quarter: 2012Q3

REPORT INFORMATION
  Report Type: 
  Country: None (occurrence: None)
  Receive Date: 20120808
  Receipt Date: 20120727
  Transmission Date: 20120928
  Serious: Yes (Death)
  Sender: FDA-Public Use
  Company Number: JPI-P-014931

PATIENT
  Age: 73 Year
  Sex: Female

DRUGS (2)
  1. XYREM [Suspect]
     Dosage: 4.5 GM (2.25 GM, 2 IN 1 D), ORAL; UNK, ORAL; 9 GM (4.5 GM, 2 IN 1 D), ORAL
     Route: 048
     Dates: start: 20081112
  2. XYREM [Suspect]
     Dosage: 4.5 GM (2.25 GM, 2 IN 1 D), ORAL; UNK, ORAL; 9 GM (4.5 GM, 2 IN 1 D), ORAL
     Route: 048
     Dates: start: 20101126

REACTIONS (4)
  - NERVOUSNESS [None]
  - SLEEP INERTIA [None]
  - ABDOMINAL PAIN [None]
  - INTESTINAL ISCHAEMIA [None]
